FAERS Safety Report 10055856 (Version 1)
Quarter: 2014Q2

REPORT INFORMATION
  Report Type: Report from Study
  Country: CA (occurrence: CA)
  Receive Date: 20140403
  Receipt Date: 20140403
  Transmission Date: 20141212
  Serious: Yes (Other)
  Sender: FDA-Public Use
  Company Number: CA-JNJFOC-20140318280

PATIENT
  Sex: Male
  Weight: 90.4 kg

DRUGS (3)
  1. SIMPONI [Suspect]
     Indication: PSORIATIC ARTHROPATHY
     Route: 058
     Dates: start: 20130925, end: 20140327
  2. METFORMIN [Concomitant]
     Dosage: UNITS: MG
     Route: 048
  3. NAPROXEN [Concomitant]
     Dosage: UNITS: MG
     Route: 048

REACTIONS (1)
  - Prostatitis [Unknown]
